FAERS Safety Report 15724222 (Version 1)
Quarter: 2018Q4

REPORT INFORMATION
  Report Type: Spontaneous
  Country: US (occurrence: US)
  Receive Date: 20181214
  Receipt Date: 20181214
  Transmission Date: 20190205
  Serious: No
  Sender: FDA-Public Use
  Company Number: US-ASTRAZENECA-2018SF62520

PATIENT

DRUGS (1)
  1. PRILOSEC OTC [Suspect]
     Active Substance: OMEPRAZOLE MAGNESIUM
     Dosage: 2.0DF UNKNOWN
     Route: 048

REACTIONS (5)
  - Extra dose administered [Unknown]
  - Drug ineffective [Unknown]
  - Overdose [Unknown]
  - Suspected counterfeit product [Unknown]
  - Nausea [Unknown]
